FAERS Safety Report 4281679-4 (Version None)
Quarter: 2004Q1

REPORT INFORMATION
  Report Type: 
  Country: None (occurrence: None)
  Receive Date: 20040128
  Receipt Date: 20040115
  Transmission Date: 20041129
  Serious: Yes (Disabling)
  Sender: FDA-Public Use
  Company Number: UK053095

PATIENT
  Age: 35 Year
  Sex: Female
  Weight: 53 kg

DRUGS (11)
  1. ARANESP [Suspect]
     Indication: DIALYSIS
     Dosage: 20 MCG, 1 IN 1 WEEKS, SC
     Route: 058
     Dates: start: 20030303
  2. LANSOPRAZOLE [Concomitant]
  3. ATORVASTATIN [Concomitant]
  4. CLOPIDOGREL BISULFATE [Concomitant]
  5. INSULIN [Concomitant]
  6. SEVELAMER HCL [Concomitant]
  7. RAMIPRIL [Concomitant]
  8. SALBUTAMOL [Concomitant]
  9. GLYCERYL TRINITRATE [Concomitant]
  10. INSULIN INJECTION, ISOPHANE [Concomitant]
  11. IRON [Concomitant]

REACTIONS (4)
  - BLOOD LACTATE DEHYDROGENASE INCREASED [None]
  - DRUG INEFFECTIVE [None]
  - HAEMOLYSIS [None]
  - HAPTOGLOBIN INCREASED [None]
